FAERS Safety Report 14010861 (Version 1)
Quarter: 2017Q3

REPORT INFORMATION
  Report Type: Spontaneous
  Country: US (occurrence: US)
  Receive Date: 20170926
  Receipt Date: 20170926
  Transmission Date: 20171128
  Serious: Yes (Other)
  Sender: FDA-Public Use
  Company Number: US-BRISTOL-MYERS SQUIBB COMPANY-BMS-2017-084254

PATIENT
  Sex: Male
  Weight: 72.9 kg

DRUGS (1)
  1. YERVOY [Suspect]
     Active Substance: IPILIMUMAB
     Indication: PRODUCT USED FOR UNKNOWN INDICATION
     Dosage: STRENGTH: 200MGX3, 50MGX3; DOSAGE: INFUSE 729MG (10MG PER KG)
     Route: 065
     Dates: start: 20170816

REACTIONS (3)
  - Toxicity to various agents [Unknown]
  - Colitis [Unknown]
  - Prescribed overdose [Unknown]
